FAERS Safety Report 5103029-3 (Version None)
Quarter: 2006Q3

REPORT INFORMATION
  Report Type: 
  Country: None (occurrence: None)
  Receive Date: 20060908
  Receipt Date: 20060830
  Transmission Date: 20061208
  Serious: Yes (Life-Threatening)
  Sender: FDA-Public Use
  Company Number: CN-2006-025577

PATIENT
  Age: 67 Year
  Sex: Male

DRUGS (1)
  1. ULTRAVIST 300 [Suspect]
     Indication: COMPUTERISED TOMOGRAM
     Dosage: 150 ML, 1 DOSE,
     Dates: start: 20060821, end: 20060821

REACTIONS (1)
  - ANAPHYLACTIC SHOCK [None]
